FAERS Safety Report 4265790-X (Version None)
Quarter: 2004Q1

REPORT INFORMATION
  Report Type: 
  Country: None (occurrence: None)
  Receive Date: 20040107
  Receipt Date: 20040107
  Transmission Date: 20041129
  Serious: Yes (Other)
  Sender: FDA-Public Use
  Company Number: None

PATIENT
  Age: 60 Year
  Sex: Female
  Weight: 68.0396 kg

DRUGS (5)
  1. ZELNORM [Suspect]
     Indication: IRRITABLE BOWEL SYNDROME
     Dosage: ORALLY TWICE/DAY
     Route: 048
     Dates: start: 20031120, end: 20031203
  2. LITHIUM CARBONATE [Concomitant]
  3. NEURONTIN [Concomitant]
  4. LAMICTAL [Concomitant]
  5. AMBIEN [Concomitant]

REACTIONS (2)
  - ABNORMAL FAECES [None]
  - INTESTINAL OBSTRUCTION [None]
